FAERS Safety Report 4782386-1 (Version None)
Quarter: 2005Q3

REPORT INFORMATION
  Report Type: 
  Country: None (occurrence: None)
  Receive Date: 20050929
  Receipt Date: 20050916
  Transmission Date: 20060218
  Serious: Yes (Other)
  Sender: FDA-Public Use
  Company Number: 2005UW13941

PATIENT
  Age: 50 Year
  Sex: Male

DRUGS (4)
  1. SEROQUEL [Suspect]
     Route: 048
     Dates: start: 20040601
  2. SEROQUEL [Suspect]
     Route: 048
     Dates: start: 20050201
  3. PERPHENAZINE [Concomitant]
     Route: 048
  4. PERPHENAZINE [Concomitant]
     Route: 048

REACTIONS (2)
  - LIVER FUNCTION TEST [None]
  - LIVER FUNCTION TEST ABNORMAL [None]
